FAERS Safety Report 23048234 (Version 8)
Quarter: 2024Q2

REPORT INFORMATION
  Report Type: Spontaneous
  Country: CA (occurrence: CA)
  Receive Date: 20231010
  Receipt Date: 20240605
  Transmission Date: 20240716
  Serious: Yes (Other)
  Sender: FDA-Public Use
  Company Number: CA-CELLTRION INC.-2023CA013905

PATIENT

DRUGS (10)
  1. INFLECTRA [Suspect]
     Active Substance: INFLIXIMAB-DYYB
     Indication: Crohn^s disease
     Dosage: 5 MG/KG, WEEKS 0,2,6 THEN EVERY 8 WEEKS
     Route: 042
     Dates: start: 20230621
  2. INFLECTRA [Suspect]
     Active Substance: INFLIXIMAB-DYYB
     Dosage: 480 MG (5 MG/KG), AFTER 2 WEEKS
     Route: 042
     Dates: start: 20230704
  3. INFLECTRA [Suspect]
     Active Substance: INFLIXIMAB-DYYB
     Dosage: 490 MG (5 MG/KG), WEEK 6
     Route: 042
     Dates: start: 20230802
  4. INFLECTRA [Suspect]
     Active Substance: INFLIXIMAB-DYYB
     Dosage: 500 MG (5 MG/KG), AFTER 8 WEEKS
     Route: 042
     Dates: start: 20230927
  5. INFLECTRA [Suspect]
     Active Substance: INFLIXIMAB-DYYB
     Dosage: 5 MG/KG, EVERY 8 WEEKS
     Route: 042
     Dates: start: 20231122
  6. INFLECTRA [Suspect]
     Active Substance: INFLIXIMAB-DYYB
     Dosage: 510 MG (5 MG/KG), AFTER 8 WEEKS AND 1 DAY (EVERY 8 WEEKS)
     Route: 042
     Dates: start: 20240118
  7. INFLECTRA [Suspect]
     Active Substance: INFLIXIMAB-DYYB
     Dosage: 525 MG (5 MG/KG), AFTER 7 WEEKS AND 6 DAYS (EVERY 8 WEEKS)
     Route: 042
     Dates: start: 20240313
  8. INFLECTRA [Suspect]
     Active Substance: INFLIXIMAB-DYYB
     Dosage: 525 MG (5 MG/KG), AFTER 7 WEEKS AND 6 DAYS (EVERY 8 WEEKS)
     Route: 042
     Dates: start: 20240507
  9. INFLECTRA [Suspect]
     Active Substance: INFLIXIMAB-DYYB
     Dosage: 1060 MG (10 MG/KG), AFTER 3 WEEKS (WEEK 0 REINDUCTION)
     Route: 042
     Dates: start: 20240528
  10. PREDNISONE [Concomitant]
     Active Substance: PREDNISONE
     Dosage: 40 MG

REACTIONS (14)
  - Spinal stenosis [Not Recovered/Not Resolved]
  - Drug level below therapeutic [Unknown]
  - Condition aggravated [Recovered/Resolved]
  - Fistula [Recovered/Resolved]
  - Dry mouth [Recovered/Resolved]
  - Fatigue [Recovered/Resolved]
  - Arthralgia [Recovered/Resolved]
  - Burning sensation [Not Recovered/Not Resolved]
  - Erythema [Recovering/Resolving]
  - Pruritus [Not Recovered/Not Resolved]
  - Hypertension [Not Recovered/Not Resolved]
  - Urticaria [Recovering/Resolving]
  - Off label use [Unknown]
  - Inappropriate schedule of product administration [Unknown]

NARRATIVE: CASE EVENT DATE: 20230101
